FAERS Safety Report 10024532 (Version 1)
Quarter: 2014Q1

REPORT INFORMATION
  Report Type: Spontaneous
  Country: US (occurrence: US)
  Receive Date: 20140320
  Receipt Date: 20140320
  Transmission Date: 20141002
  Serious: Yes (Other)
  Sender: FDA-Public Use
  Company Number: US-RB-064927-14

PATIENT
  Sex: Female

DRUGS (2)
  1. SUBOXONE TABLET [Suspect]
     Indication: DRUG DEPENDENCE
     Dosage: TAKING 1 EVERY 2 OR 3 DAYS
     Route: 064
     Dates: start: 2010, end: 20120825
  2. NICOTINE [Concomitant]
     Indication: PRODUCT USED FOR UNKNOWN INDICATION
     Dosage: UNKNOWN DOSING DETAILS
     Route: 064
     Dates: start: 200911, end: 20100825

REACTIONS (3)
  - Foetal exposure during pregnancy [Recovered/Resolved]
  - Apraxia [Recovered/Resolved]
  - No adverse event [Recovered/Resolved]
